FAERS Safety Report 10753105 (Version 6)
Quarter: 2016Q1

REPORT INFORMATION
  Report Type: Spontaneous
  Country: US (occurrence: US)
  Receive Date: 20150130
  Receipt Date: 20160218
  Transmission Date: 20160525
  Serious: Yes (Hospitalization, Other)
  Sender: FDA-Public Use
  Company Number: US-PFIZER INC-2015034899

PATIENT
  Age: 66 Year
  Sex: Female
  Weight: 49 kg

DRUGS (7)
  1. LASIX [Concomitant]
     Active Substance: FUROSEMIDE
     Dosage: UNK
  2. LYRICA [Suspect]
     Active Substance: PREGABALIN
     Indication: NEUROPATHY PERIPHERAL
  3. NORCO [Suspect]
     Active Substance: ACETAMINOPHEN\HYDROCODONE BITARTRATE
     Dosage: 10/325 BID WHEN NECESSARY
  4. LYRICA [Suspect]
     Active Substance: PREGABALIN
     Indication: SPINAL CORD DISORDER
     Dosage: 100 MG, 1X/DAY
     Route: 048
  5. LYRICA [Suspect]
     Active Substance: PREGABALIN
     Indication: FIBROMYALGIA
  6. PRAZOLAC [Concomitant]
     Dosage: UNK
  7. LYRICA [Suspect]
     Active Substance: PREGABALIN
     Indication: NEURALGIA
     Dosage: 100 MG, 2X/DAY
     Route: 048
     Dates: start: 200805

REACTIONS (15)
  - Coma [Unknown]
  - Insomnia [Unknown]
  - Weight fluctuation [Unknown]
  - Hypoaesthesia [Unknown]
  - Intentional product use issue [Unknown]
  - Balance disorder [Unknown]
  - Pain [Not Recovered/Not Resolved]
  - Feeling of body temperature change [Unknown]
  - Wrist fracture [Recovered/Resolved]
  - Spinal disorder [Unknown]
  - Staphylococcal infection [Unknown]
  - Lumbar vertebral fracture [Unknown]
  - Burning sensation [Not Recovered/Not Resolved]
  - Bone pain [Unknown]
  - Body height decreased [Unknown]
